FAERS Safety Report 5392204-9 (Version None)
Quarter: 2007Q3

REPORT INFORMATION
  Report Type: 
  Country: None (occurrence: None)
  Receive Date: 20070717
  Receipt Date: 20070717
  Transmission Date: 20080115
  Serious: Yes (Hospitalization)
  Sender: FDA-Public Use
  Company Number: None

PATIENT
  Age: 74 Year
  Sex: Male
  Weight: 92.9874 kg

DRUGS (2)
  1. CETUXIMAB [Suspect]
     Indication: COLON CANCER
     Dosage: 1070 MG  IV DRIP
     Route: 041
     Dates: start: 20060710, end: 20070710
  2. IRINOTECAN HCL [Suspect]
     Indication: COLON CANCER
     Dosage: 420MG  IV DRIP
     Route: 041

REACTIONS (3)
  - DIARRHOEA [None]
  - NAUSEA [None]
  - VOMITING [None]
